FAERS Safety Report 4327551-2 (Version None)
Quarter: 2004Q1

REPORT INFORMATION
  Report Type: 
  Country: None (occurrence: None)
  Receive Date: 20040325
  Receipt Date: 20040311
  Transmission Date: 20041129
  Serious: Yes (Hospitalization, Other)
  Sender: FDA-Public Use
  Company Number: 228849

PATIENT
  Sex: Female
  Weight: 4.2 kg

DRUGS (2)
  1. ACTRAPID PENFILL HM(GE) 3 ML (INSULIN HUMAN) SOLUTION FOR INJECTION, 1 [Suspect]
     Indication: DIABETES MELLITUS
     Dosage: 80 IU, INTRAUTERINE
     Route: 015
     Dates: start: 20021025
  2. INSULATARD PENFILL (INSULIN HUMAN) SUSPENSION FOR INJECTION [Concomitant]

REACTIONS (5)
  - CAESAREAN SECTION [None]
  - CYANOSIS NEONATAL [None]
  - HYPOGLYCAEMIA NEONATAL [None]
  - MATERNAL DRUGS AFFECTING FOETUS [None]
  - PREMATURE BABY [None]
